FAERS Safety Report 8424233-2 (Version None)
Quarter: 2012Q2

REPORT INFORMATION
  Report Type: 
  Country: None (occurrence: None)
  Receive Date: 20120608
  Receipt Date: 20111019
  Transmission Date: 20120825
  Serious: No
  Sender: FDA-Public Use
  Company Number: US-ASTRAZENECA-2011SE63218

PATIENT
  Age: 72 Year
  Sex: Male
  Weight: 71.7 kg

DRUGS (7)
  1. SPIRIVA [Concomitant]
  2. PULMICORT [Suspect]
     Route: 055
     Dates: start: 20111001
  3. XOPENEX [Concomitant]
  4. PULMICORT [Suspect]
     Indication: EMPHYSEMA
     Route: 055
     Dates: end: 20111001
  5. BROVANA [Concomitant]
  6. MEDICATION FOR URINARY PURPOSES [Concomitant]
     Indication: URINARY TRACT DISORDER
  7. OXYGEN [Concomitant]

REACTIONS (3)
  - DYSPNOEA [None]
  - DISEASE PROGRESSION [None]
  - NASAL CONGESTION [None]
